FAERS Safety Report 9234546 (Version 2)
Quarter: 2013Q2

REPORT INFORMATION
  Report Type: Spontaneous
  Country: DZ (occurrence: DZ)
  Receive Date: 20130416
  Receipt Date: 20130619
  Transmission Date: 20140414
  Serious: Yes (Death, Disabling)
  Sender: FDA-Public Use
  Company Number: DZ-GLAXOSMITHKLINE-B0883807A

PATIENT
  Age: 55 Year
  Sex: Female

DRUGS (2)
  1. LAPATINIB [Suspect]
     Indication: BREAST CANCER
     Dosage: 1250MG PER DAY
     Route: 065
     Dates: start: 201209
  2. CAPECITABINE [Concomitant]
     Indication: BREAST CANCER

REACTIONS (2)
  - Death [Fatal]
  - Thrombophlebitis [Recovered/Resolved with Sequelae]
